FAERS Safety Report 17708013 (Version 1)
Quarter: 2020Q2

REPORT INFORMATION
  Report Type: Spontaneous
  Country: IT (occurrence: IT)
  Receive Date: 20200425
  Receipt Date: 20200425
  Transmission Date: 20200714
  Serious: Yes (Other)
  Sender: FDA-Public Use
  Company Number: IT-ADVANZ PHARMA-GSH201610-005089

PATIENT

DRUGS (7)
  1. METHOTREXATE. [Suspect]
     Active Substance: METHOTREXATE
     Indication: RHEUMATOID ARTHRITIS
     Dosage: 7.5 MG EVERY 10 DAYS
     Route: 065
     Dates: start: 201312
  2. METHOTREXATE. [Suspect]
     Active Substance: METHOTREXATE
     Dosage: REDUCTION IN THE DOSE OF METHOTREXATE 7.5 MG EVERY 10 DAYS
  3. BROMAZEPAM [Concomitant]
     Active Substance: BROMAZEPAM
     Indication: EXTRASYSTOLES
  4. CERTOLIZUMAB PEGOL [Suspect]
     Active Substance: CERTOLIZUMAB PEGOL
     Indication: RHEUMATOID ARTHRITIS
     Dosage: 200 MG EVERY OTHER WEEK
     Route: 065
     Dates: start: 201206
  5. HYDROXYCHLOROQUINE [Suspect]
     Active Substance: HYDROXYCHLOROQUINE
     Indication: RHEUMATOID ARTHRITIS
     Dosage: 200 MG, QD
     Route: 065
     Dates: start: 201505
  6. BROMAZEPAM [Concomitant]
     Active Substance: BROMAZEPAM
     Indication: ANXIETY
  7. CERTOLIZUMAB PEGOL [Suspect]
     Active Substance: CERTOLIZUMAB PEGOL
     Dosage: 200 MG EVERY OTHER WEEK
     Route: 065
     Dates: start: 201206

REACTIONS (2)
  - Dilatation atrial [Not Recovered/Not Resolved]
  - Atrial flutter [Not Recovered/Not Resolved]

NARRATIVE: CASE EVENT DATE: 201506
